FAERS Safety Report 15435406 (Version 1)
Quarter: 2018Q3

REPORT INFORMATION
  Report Type: Spontaneous
  Country: IT (occurrence: IT)
  Receive Date: 20180927
  Receipt Date: 20180927
  Transmission Date: 20181010
  Serious: Yes (Hospitalization)
  Sender: FDA-Public Use
  Company Number: IT-009507513-1809ITA011126

PATIENT
  Age: 77 Year
  Sex: Female

DRUGS (1)
  1. INVANZ [Suspect]
     Active Substance: ERTAPENEM SODIUM
     Indication: INFECTION
     Route: 042

REACTIONS (2)
  - Vomiting [Not Recovered/Not Resolved]
  - Abdominal hernia obstructive [Not Recovered/Not Resolved]

NARRATIVE: CASE EVENT DATE: 20180524
